FAERS Safety Report 10685465 (Version 3)
Quarter: 2015Q1

REPORT INFORMATION
  Report Type: Spontaneous
  Country: US (occurrence: US)
  Receive Date: 20141231
  Receipt Date: 20150210
  Transmission Date: 20150720
  Serious: Yes (Life-Threatening, Other)
  Sender: FDA-Public Use
  Company Number: US-PFIZER INC-2014357558

PATIENT
  Age: 56 Year
  Sex: Female

DRUGS (1)
  1. HEPARIN SODIUM. [Suspect]
     Active Substance: HEPARIN SODIUM
     Indication: PULMONARY EMBOLISM
     Dosage: UNK
     Route: 042

REACTIONS (5)
  - Circulatory collapse [Unknown]
  - Heparin-induced thrombocytopenia [Unknown]
  - Cardio-respiratory arrest [Unknown]
  - Anaphylactoid reaction [Unknown]
  - Transient global amnesia [Recovered/Resolved]
